FAERS Safety Report 23273835 (Version 1)
Quarter: 2023Q4

REPORT INFORMATION
  Report Type: Spontaneous
  Country: CN (occurrence: CN)
  Receive Date: 20231207
  Receipt Date: 20231207
  Transmission Date: 20240109
  Serious: Yes (Hospitalization)
  Sender: FDA-Public Use
  Company Number: CN-SHANGHAI JUNSHI BIOSCIENCES CO., LTD.-CN2023008755

PATIENT

DRUGS (12)
  1. TORIPALIMAB [Suspect]
     Active Substance: TORIPALIMAB
     Indication: Salivary gland neoplasm
     Dosage: 240 MG (D3)
     Route: 041
     Dates: start: 20230805, end: 20230805
  2. TORIPALIMAB [Suspect]
     Active Substance: TORIPALIMAB
     Indication: Neoplasm
     Dosage: 240 MG (D3)
     Route: 041
     Dates: start: 20230831, end: 20230831
  3. TORIPALIMAB [Suspect]
     Active Substance: TORIPALIMAB
     Indication: Nasopharyngeal cancer
     Dosage: 240 MG (D3)
     Route: 041
     Dates: start: 20230922, end: 20230922
  4. TORIPALIMAB [Suspect]
     Active Substance: TORIPALIMAB
     Dosage: 240 MG (D3)
     Route: 041
     Dates: start: 20231014, end: 20231016
  5. PACLITAXEL [Suspect]
     Active Substance: PACLITAXEL
     Indication: Salivary gland neoplasm
     Dosage: 400 MG (D1)
     Route: 041
     Dates: start: 20230805, end: 20230805
  6. PACLITAXEL [Suspect]
     Active Substance: PACLITAXEL
     Indication: Neoplasm
     Dosage: 400 MG (D1)
     Route: 041
     Dates: start: 20230831, end: 20230831
  7. PACLITAXEL [Suspect]
     Active Substance: PACLITAXEL
     Indication: Nasopharyngeal cancer
     Dosage: 400 MG (D1)
     Route: 041
     Dates: start: 20230922, end: 20230922
  8. PACLITAXEL [Suspect]
     Active Substance: PACLITAXEL
     Dosage: 400 MG (D1)
     Route: 041
     Dates: start: 20231014, end: 20231014
  9. NEDAPLATIN [Suspect]
     Active Substance: NEDAPLATIN
     Indication: Salivary gland neoplasm
     Dosage: 110 MG (D2)
     Route: 041
     Dates: start: 20230805, end: 20230805
  10. NEDAPLATIN [Suspect]
     Active Substance: NEDAPLATIN
     Indication: Neoplasm
     Dosage: 110 MG (D2)
     Route: 041
     Dates: start: 20230831, end: 20230831
  11. NEDAPLATIN [Suspect]
     Active Substance: NEDAPLATIN
     Indication: Nasopharyngeal cancer
     Dosage: 110 MG (D2)
     Route: 041
     Dates: start: 20230922, end: 20230922
  12. NEDAPLATIN [Suspect]
     Active Substance: NEDAPLATIN
     Dosage: 110 MG (D2)
     Route: 041
     Dates: start: 20231014, end: 20231015

REACTIONS (2)
  - Myelosuppression [Recovering/Resolving]
  - Off label use [Unknown]

NARRATIVE: CASE EVENT DATE: 20230805
